FAERS Safety Report 17273602 (Version 5)
Quarter: 2021Q2

REPORT INFORMATION
  Report Type: Spontaneous
  Country: US (occurrence: US)
  Receive Date: 20200115
  Receipt Date: 20210503
  Transmission Date: 20210716
  Serious: Yes (Hospitalization, Other)
  Sender: FDA-Public Use
  Company Number: US-PFIZER INC-2020017290

PATIENT
  Age: 63 Year
  Sex: Male

DRUGS (1)
  1. XELJANZ XR [Suspect]
     Active Substance: TOFACITINIB CITRATE
     Indication: RHEUMATOID ARTHRITIS
     Dosage: 11 MG, 1X/DAY
     Route: 048
     Dates: start: 201906

REACTIONS (8)
  - Headache [Recovered/Resolved]
  - Influenza [Recovered/Resolved]
  - Procedural nausea [Unknown]
  - Diarrhoea [Recovered/Resolved]
  - Cough [Recovered/Resolved]
  - Pain [Unknown]
  - Pyrexia [Recovered/Resolved]
  - Hypertension [Recovered/Resolved]

NARRATIVE: CASE EVENT DATE: 202001
